FAERS Safety Report 14764741 (Version 5)
Quarter: 2019Q1

REPORT INFORMATION
  Report Type: Spontaneous
  Country: FR (occurrence: FR)
  Receive Date: 20180416
  Receipt Date: 20190211
  Transmission Date: 20190417
  Serious: Yes (Hospitalization)
  Sender: FDA-Public Use
  Company Number: FR-MYLANLABS-2018M1023311

PATIENT
  Age: 68 Year
  Sex: Male
  Weight: 98.5 kg

DRUGS (17)
  1. IMNOVID [Suspect]
     Active Substance: POMALIDOMIDE
     Indication: PRODUCT USED FOR UNKNOWN INDICATION
     Dosage: 1 DF, UNK
     Route: 048
     Dates: start: 20171023, end: 20171201
  2. COUMADINE [Concomitant]
     Active Substance: WARFARIN SODIUM
     Indication: ATRIAL FIBRILLATION
     Dosage: UNK, INCONNUE
     Route: 048
     Dates: start: 20171127
  3. VELCADE [Suspect]
     Active Substance: BORTEZOMIB
     Indication: PLASMA CELL MYELOMA
     Dosage: 2.75 MG,CYCLE  J1 J4 J8 J11
     Route: 042
     Dates: start: 20150710, end: 20160120
  4. ULTIBRO BREEZHALER [Concomitant]
     Active Substance: GLYCOPYRRONIUM\INDACATEROL
     Indication: LUNG DISORDER
     Dosage: UNK, INCONNUE
     Route: 055
     Dates: start: 20180110
  5. VELCADE [Suspect]
     Active Substance: BORTEZOMIB
     Dosage: 2.75 MG, CYCLE, 21 DAYS CYCLE
     Route: 042
     Dates: start: 20171023, end: 20171201
  6. XATRAL                             /00975302/ [Concomitant]
     Active Substance: ALFUZOSIN HYDROCHLORIDE
     Indication: PRODUCT USED FOR UNKNOWN INDICATION
     Dosage: 1 DF, UNK
     Route: 048
  7. ZELITREX [Concomitant]
     Active Substance: VALACYCLOVIR HYDROCHLORIDE
     Indication: INFECTION PROPHYLAXIS
     Dosage: 2 DF, UNK
     Route: 048
  8. ARESTAL [Concomitant]
     Active Substance: LOPERAMIDE OXIDE
     Indication: DIARRHOEA
     Dosage: 3 DF, UNK
     Route: 048
  9. DEXAMETHASONE. [Concomitant]
     Active Substance: DEXAMETHASONE
     Indication: PLASMA CELL MYELOMA
     Dosage: 20 MG, UNK, TOUT LES LUNDIS MATIN
     Route: 048
     Dates: start: 20150710, end: 20171201
  10. CALCIDOSE                          /07357001/ [Concomitant]
     Active Substance: CALCIUM CARBONATE
     Indication: PRODUCT USED FOR UNKNOWN INDICATION
     Dosage: 1 DOSAGE FORM (1 DF, UNK)
     Route: 048
  11. BURINEX [Concomitant]
     Active Substance: BUMETANIDE
     Indication: OEDEMA
     Dosage: 3 DF, UNK
     Route: 048
     Dates: start: 201710
  12. PANTOPRAZOLE [Concomitant]
     Active Substance: PANTOPRAZOLE
     Indication: PRODUCT USED FOR UNKNOWN INDICATION
     Dosage: 80 MG, UNK
     Route: 048
  13. SOTALOL. [Suspect]
     Active Substance: SOTALOL
     Indication: ATRIAL FIBRILLATION
     Dosage: UNK, INCONNUE
     Route: 048
     Dates: start: 20170310
  14. DIFFU K [Concomitant]
     Active Substance: POTASSIUM CHLORIDE
     Indication: HYPOKALAEMIA
     Dosage: 3 DF, UNK
     Route: 048
  15. SPIRIVA [Concomitant]
     Active Substance: TIOTROPIUM BROMIDE MONOHYDRATE
     Indication: LUNG DISORDER
     Dosage: 1 GBQ, UNK
     Route: 055
     Dates: end: 20180110
  16. TIORFAN [Concomitant]
     Active Substance: RACECADOTRIL
     Indication: DIARRHOEA
     Dosage: 3 DOSAGE FORM (3 DF, UNK)
     Route: 048
  17. BACTRIM [Concomitant]
     Active Substance: SULFAMETHOXAZOLE\TRIMETHOPRIM
     Indication: INFECTION PROPHYLAXIS
     Dosage: UNK, 1 CP UN JOUR SUR 2
     Route: 048

REACTIONS (3)
  - Bronchitis chronic [Not Recovered/Not Resolved]
  - Product use in unapproved indication [Unknown]
  - Dyspnoea [Not Recovered/Not Resolved]

NARRATIVE: CASE EVENT DATE: 20171102
